FAERS Safety Report 10333252 (Version 2)
Quarter: 2014Q3

REPORT INFORMATION
  Report Type: Spontaneous
  Country: CH (occurrence: CH)
  Receive Date: 20140722
  Receipt Date: 20140731
  Transmission Date: 20150326
  Serious: Yes (Hospitalization, Other)
  Sender: FDA-Public Use
  Company Number: CH-GILEAD-2014-0109358

PATIENT
  Age: 48 Year
  Sex: Male
  Weight: 61 kg

DRUGS (6)
  1. INTELENCE [Concomitant]
     Active Substance: ETRAVIRINE
  2. ZIAGEN [Concomitant]
     Active Substance: ABACAVIR SULFATE
  3. DOLOPHINE [Concomitant]
     Active Substance: METHADONE HYDROCHLORIDE
  4. DACLATASVIR [Suspect]
     Active Substance: DACLATASVIR
     Indication: PRODUCT USED FOR UNKNOWN INDICATION
     Dosage: 1 DF, QD
     Route: 065
  5. ISENTRESS [Concomitant]
     Active Substance: RALTEGRAVIR POTASSIUM
  6. SOVALDI [Suspect]
     Active Substance: SOFOSBUVIR
     Indication: PRODUCT USED FOR UNKNOWN INDICATION
     Dosage: 400 MG, QD
     Route: 065
     Dates: start: 201405

REACTIONS (1)
  - Erysipelas [Recovered/Resolved]

NARRATIVE: CASE EVENT DATE: 20140606
